FAERS Safety Report 25045827 (Version 4)
Quarter: 2025Q2

REPORT INFORMATION
  Report Type: Report from Study
  Country: MA (occurrence: MA)
  Receive Date: 20250306
  Receipt Date: 20250416
  Transmission Date: 20250716
  Serious: Yes (Other)
  Sender: NOVARTIS
  Company Number: MA-002147023-NVSC2025MA030823

PATIENT
  Sex: Female

DRUGS (3)
  1. KISQALI [Suspect]
     Active Substance: RIBOCICLIB SUCCINATE
     Indication: Breast cancer
     Dosage: 200 MG, TID
     Route: 048
     Dates: start: 20250124
  2. KISQALI [Suspect]
     Active Substance: RIBOCICLIB SUCCINATE
     Dosage: 3 DOSAGE FORM, QD (IN THE FIRST MONTH, THE PATIENT TOOK 3 TABLETS PER DAY)
     Route: 065
  3. KISQALI [Suspect]
     Active Substance: RIBOCICLIB SUCCINATE
     Dosage: 2 DOSAGE FORM, QD (IN THE SECOND MONTH, THE PATIENT TOOK 2 TABLETS PER DAY AFTER 2H OF BREAKFAST)
     Route: 048
     Dates: start: 20250302

REACTIONS (3)
  - Decreased immune responsiveness [Recovered/Resolved with Sequelae]
  - Fatigue [Recovered/Resolved with Sequelae]
  - Inappropriate schedule of product administration [Unknown]
